FAERS Safety Report 9962837 (Version 2)
Quarter: 2014Q1

REPORT INFORMATION
  Report Type: Report from Study
  Country: US (occurrence: US)
  Receive Date: 20140305
  Receipt Date: 20140305
  Transmission Date: 20141002
  Serious: No
  Sender: FDA-Public Use
  Company Number: US-ABBVIE-13P-163-1072509-00

PATIENT
  Age: 68 Year
  Sex: Male

DRUGS (9)
  1. HUMIRA [Suspect]
     Indication: COLITIS ULCERATIVE
     Route: 058
     Dates: start: 20130301, end: 20130315
  2. HUMIRA [Suspect]
     Dates: start: 20130315, end: 20130329
  3. HUMIRA [Suspect]
     Dates: start: 20130329
  4. BLOOD PRESSURE PILL [Concomitant]
     Indication: HYPOTENSION
  5. ASACOL [Concomitant]
     Indication: COLITIS ULCERATIVE
  6. UNKNOWN MEDICATION [Concomitant]
     Indication: PROSTATOMEGALY
     Dosage: 2 PILLS
  7. UNKNOWN MEDICATION [Concomitant]
     Indication: PROSTATOMEGALY
     Dosage: PILLS
  8. UNKNOWN MEDICATION(S) [Concomitant]
     Indication: PRODUCT USED FOR UNKNOWN INDICATION
  9. NEXIUM [Concomitant]
     Indication: PRODUCT USED FOR UNKNOWN INDICATION

REACTIONS (8)
  - Hypotension [Not Recovered/Not Resolved]
  - Injection site pain [Not Recovered/Not Resolved]
  - Toothache [Unknown]
  - Fatigue [Not Recovered/Not Resolved]
  - Arthritis [Unknown]
  - Arthralgia [Not Recovered/Not Resolved]
  - Joint swelling [Not Recovered/Not Resolved]
  - Aspiration joint [Unknown]
